FAERS Safety Report 17450555 (Version 1)
Quarter: 2020Q1

REPORT INFORMATION
  Report Type: Spontaneous
  Country: US (occurrence: US)
  Receive Date: 20200208
  Receipt Date: 20200208
  Transmission Date: 20200409
  Serious: Yes (Death)
  Sender: FDA-Public Use
  Company Number: None

PATIENT
  Age: 73 Year
  Sex: Male
  Weight: 66.7 kg

DRUGS (2)
  1. CYTARABINE. [Suspect]
     Active Substance: CYTARABINE
     Dates: end: 20200114
  2. DAUNORUBICIN [Concomitant]
     Active Substance: DAUNORUBICIN
     Dates: end: 20200110

REACTIONS (16)
  - Febrile neutropenia [None]
  - Haemodialysis [None]
  - Fluid overload [None]
  - Hypotension [None]
  - Hepatic failure [None]
  - Mucosal inflammation [None]
  - Acute kidney injury [None]
  - Hyperbilirubinaemia [None]
  - Cholelithiasis [None]
  - Dysphagia [None]
  - Escherichia bacteraemia [None]
  - Oliguria [None]
  - Hyperkalaemia [None]
  - Blood bilirubin increased [None]
  - Lymphadenopathy [None]
  - Ultrasound biliary tract abnormal [None]

NARRATIVE: CASE EVENT DATE: 20200116
